FAERS Safety Report 8228167-8 (Version None)
Quarter: 2012Q1

REPORT INFORMATION
  Report Type: 
  Country: None (occurrence: None)
  Receive Date: 20120322
  Receipt Date: 20111221
  Transmission Date: 20120608
  Serious: Yes (Hospitalization)
  Sender: FDA-Public Use
  Company Number: US-BRISTOL-MYERS SQUIBB COMPANY-16285348

PATIENT
  Age: 61 Year
  Sex: Male

DRUGS (18)
  1. PERIDEX [Concomitant]
     Dosage: 12%
     Route: 048
  2. ROBITUSSIN DM [Concomitant]
     Indication: COUGH
     Dosage: 5-100MG/5ML SYRUP 4HRS
     Route: 048
  3. SINEQUAN [Concomitant]
     Indication: PAIN
     Dosage: 10MG/ML EVERY 4HRS
     Route: 048
  4. ATIVAN [Concomitant]
     Indication: SLEEP DISORDER
     Dosage: 1DF = 1TAB .5MG EVERY 4HRS
     Route: 048
  5. COMPAZINE [Concomitant]
     Indication: VOMITING
     Dosage: 1DF= 1TAB OF 10MG EVERY 6HRS
     Route: 048
  6. ATIVAN [Concomitant]
     Indication: NAUSEA
     Dosage: 1DF = 1TAB .5MG EVERY 4HRS
     Route: 048
  7. PREVACID [Concomitant]
     Dosage: 1DF = 1CAP
     Route: 048
  8. SILVADENE [Concomitant]
     Route: 061
  9. TYLENOL [Concomitant]
     Indication: PAIN
     Dosage: 1DF = 1TAB 8HR SUSTAINED RELEASE 2/D PRN
     Route: 048
  10. DOCETAXEL [Concomitant]
     Indication: HEAD AND NECK CANCER
     Route: 042
     Dates: start: 20111109, end: 20111130
  11. MELATONIN [Concomitant]
     Indication: INSOMNIA
     Dosage: TAB, EVERY BED TIME
     Route: 048
  12. PREVIDENT [Concomitant]
     Dosage: 1DF = 1.1%GEL
     Route: 004
  13. TRAMADOL HCL [Concomitant]
     Indication: PAIN
     Dosage: 1DF = 1TAB SMALL BOWEL TUBE EVERY 6HRS
  14. ERBITUX [Suspect]
     Indication: HEAD AND NECK CANCER
     Dosage: LOADING DOSE=400MG/M2.
     Route: 042
     Dates: start: 20111102, end: 20111116
  15. TRANSDERM SCOP [Concomitant]
     Dosage: PATCH
     Route: 062
  16. MUCINEX [Concomitant]
     Indication: SECRETION DISCHARGE
     Dosage: 1TAB OF 600MG
  17. ASPIRIN [Concomitant]
     Route: 048
  18. COMPAZINE [Concomitant]
     Indication: NAUSEA
     Dosage: 1DF= 1TAB OF 10MG EVERY 6HRS
     Route: 048

REACTIONS (6)
  - DEHYDRATION [None]
  - RASH [None]
  - VOMITING [None]
  - SPEECH DISORDER [None]
  - NAUSEA [None]
  - SKIN ULCER [None]
